FAERS Safety Report 5670252-9 (Version None)
Quarter: 2008Q1

REPORT INFORMATION
  Report Type: 
  Country: None (occurrence: None)
  Receive Date: 20080314
  Receipt Date: 20080314
  Transmission Date: 20080703
  Serious: Yes (Hospitalization)
  Sender: FDA-Public Use
  Company Number: None

PATIENT
  Sex: Male

DRUGS (8)
  1. SORAFENIB [Suspect]
     Indication: PROSTATE CANCER
     Dosage: 400 MG BID PO
     Route: 048
     Dates: start: 20071119
  2. DOCETAXEL [Suspect]
     Indication: PROSTATE CANCER
     Dosage: 75 MG/M2 Q3WEEKS IV
     Route: 042
     Dates: start: 20071119
  3. MOTRIN [Concomitant]
  4. FENTANYL TRANSDERMAL SYSTEM [Concomitant]
  5. TYLENOL (CAPLET) [Concomitant]
  6. LUPRON [Concomitant]
  7. PREDNISONE TAB [Concomitant]
  8. VITAMIN CAP [Concomitant]

REACTIONS (7)
  - ABDOMINAL PAIN [None]
  - DEHYDRATION [None]
  - ELECTROLYTE IMBALANCE [None]
  - FATIGUE [None]
  - NAUSEA [None]
  - PAIN [None]
  - VOMITING [None]
